FAERS Safety Report 11868273 (Version 1)
Quarter: 2015Q4

REPORT INFORMATION
  Report Type: Spontaneous
  Country: US (occurrence: US)
  Receive Date: 20151224
  Receipt Date: 20151224
  Transmission Date: 20160305
  Serious: Yes (Other)
  Sender: FDA-Public Use
  Company Number: US-ASTRAZENECA-2015SF28846

PATIENT
  Age: 47 Year
  Sex: Male
  Weight: 95.7 kg

DRUGS (4)
  1. SYMBICORT [Suspect]
     Active Substance: BUDESONIDE\FORMOTEROL FUMARATE DIHYDRATE
     Indication: ASTHMA
     Dosage: 160/4.5, 2 PUFFS TWICE DAILY
     Route: 055
  2. PREDNISONE. [Concomitant]
     Active Substance: PREDNISONE
     Indication: DYSPNOEA
  3. CYCLOBENZAPRINE [Concomitant]
     Active Substance: CYCLOBENZAPRINE
     Indication: MUSCLE RELAXANT THERAPY
  4. IPRATROPIUM BROMIDE. [Concomitant]
     Active Substance: IPRATROPIUM BROMIDE
     Indication: INHALATION THERAPY

REACTIONS (11)
  - Angina pectoris [Unknown]
  - Swelling [Unknown]
  - Chest pain [Unknown]
  - Asthma [Unknown]
  - Dyspnoea [Unknown]
  - Face oedema [Unknown]
  - Intentional product misuse [Unknown]
  - Road traffic accident [Unknown]
  - Amnesia [Unknown]
  - Headache [Unknown]
  - Fibromyalgia [Unknown]

NARRATIVE: CASE EVENT DATE: 2010
